FAERS Safety Report 5761703-X (Version None)
Quarter: 2008Q2

REPORT INFORMATION
  Report Type: 
  Country: None (occurrence: None)
  Receive Date: 20080606
  Receipt Date: 20080528
  Transmission Date: 20081010
  Serious: Yes (Congenital Anomaly)
  Sender: FDA-Public Use
  Company Number: GB-ABBOTT-08P-167-0442237-00

PATIENT
  Sex: Male
  Weight: 3.042 kg

DRUGS (1)
  1. EPILIM CHRONO TABLETS PR [Suspect]
     Indication: DRUG EXPOSURE DURING PREGNANCY
     Route: 064

REACTIONS (31)
  - ABNORMAL BEHAVIOUR [None]
  - ASTIGMATISM [None]
  - BALANCE DISORDER [None]
  - CONGENITAL FLOPPY INFANT [None]
  - CONGENITAL HAIR DISORDER [None]
  - CONGENITAL NOSE MALFORMATION [None]
  - COORDINATION ABNORMAL [None]
  - CROUP INFECTIOUS [None]
  - DEVELOPMENTAL COORDINATION DISORDER [None]
  - DISTURBANCE IN ATTENTION [None]
  - DRUG EXPOSURE DURING PREGNANCY [None]
  - DYSGRAPHIA [None]
  - DYSMORPHISM [None]
  - EXPRESSIVE LANGUAGE DISORDER [None]
  - FEEDING DISORDER NEONATAL [None]
  - FOETAL ANTICONVULSANT SYNDROME [None]
  - HAEMANGIOMA [None]
  - HYPOTONIA [None]
  - ILLITERACY [None]
  - JOINT INSTABILITY [None]
  - LACK OF SPONTANEOUS SPEECH [None]
  - LIGAMENT LAXITY [None]
  - LIP DISORDER [None]
  - LOWER RESPIRATORY TRACT INFECTION [None]
  - MYOPIA [None]
  - OPTIC NERVE HYPOPLASIA [None]
  - PSYCHOMOTOR SKILLS IMPAIRED [None]
  - SKULL MALFORMATION [None]
  - SPEECH DISORDER [None]
  - SPEECH DISORDER DEVELOPMENTAL [None]
  - URINARY INCONTINENCE [None]
